FAERS Safety Report 14797980 (Version 2)
Quarter: 2018Q4

REPORT INFORMATION
  Report Type: Spontaneous
  Country: FR (occurrence: FR)
  Receive Date: 20180424
  Receipt Date: 20181024
  Transmission Date: 20190204
  Serious: Yes (Other)
  Sender: FDA-Public Use
  Company Number: FR-MERCK KGAA-2046348

PATIENT
  Age: 57 Year
  Sex: Male

DRUGS (2)
  1. LEVOTHYROX NF [Suspect]
     Active Substance: LEVOTHYROXINE SODIUM
  2. EUTHYROX [Suspect]
     Active Substance: LEVOTHYROXINE SODIUM
     Indication: PRODUCT USED FOR UNKNOWN INDICATION
     Dates: start: 2017

REACTIONS (11)
  - Fatigue [Not Recovered/Not Resolved]
  - Headache [Recovering/Resolving]
  - Myalgia [Recovering/Resolving]
  - Nervousness [None]
  - Suicidal ideation [None]
  - Mood altered [None]
  - Irritability [None]
  - Loss of personal independence in daily activities [None]
  - Discomfort [None]
  - C-reactive protein increased [None]
  - Pain [None]

NARRATIVE: CASE EVENT DATE: 201706
